FAERS Safety Report 16719996 (Version 1)
Quarter: 2019Q3

REPORT INFORMATION
  Report Type: Spontaneous
  Country: JP (occurrence: JP)
  Receive Date: 20190820
  Receipt Date: 20190820
  Transmission Date: 20191005
  Serious: Yes (Other)
  Sender: FDA-Public Use
  Company Number: JP-PFIZER INC-2019349580

PATIENT
  Sex: Female

DRUGS (1)
  1. GABAPEN [Suspect]
     Active Substance: GABAPENTIN
     Indication: PAIN
     Dosage: UNK
     Route: 048
     Dates: start: 2019, end: 201907

REACTIONS (16)
  - Syncope [Unknown]
  - Off label use [Unknown]
  - Dizziness [Unknown]
  - Middle insomnia [Unknown]
  - Intentional dose omission [Unknown]
  - Myalgia [Unknown]
  - Constipation [Unknown]
  - Feeding disorder [Unknown]
  - Dyspnoea [Recovering/Resolving]
  - Musculoskeletal stiffness [Unknown]
  - Fibromyalgia [Unknown]
  - Product use in unapproved indication [Unknown]
  - Seizure [Recovering/Resolving]
  - Abdominal pain [Unknown]
  - Anxiety [Unknown]
  - Blood disorder [Recovering/Resolving]
